FAERS Safety Report 4994048-6 (Version None)
Quarter: 2006Q2

REPORT INFORMATION
  Report Type: 
  Country: None (occurrence: None)
  Receive Date: 20060503
  Receipt Date: 20060414
  Transmission Date: 20061013
  Serious: Yes (Hospitalization)
  Sender: FDA-Public Use
  Company Number: FR200512004473

PATIENT
  Age: 70 Year
  Sex: Female

DRUGS (10)
  1. FORTEO [Suspect]
     Indication: OSTEOPOROSIS
     Dosage: 20 UG, DAILY (1/D), SUBCUTANEOUS
     Route: 058
     Dates: start: 20051110
  2. FORTEO PEN (FORTEO PEN) PEN, DISPOSABLE [Concomitant]
  3. LANSOPRAZOLE [Concomitant]
  4. NOCTRAN 10 (ACEPROMAZINE, ACEPROMETAZINE, CLORAZEPATE DIPOTASSIUM) [Concomitant]
  5. PROPOFAN (CAFFEINE, CARBASALATE CALCIUM, CHLORPHENAMINE MALEATE, DEXTR [Concomitant]
  6. LORAZEPAM [Concomitant]
  7. FENOFIBRATE [Concomitant]
  8. LEVOTHYROXINE SODIUM [Concomitant]
  9. NUCTALON (ESTAZOLAM) [Concomitant]
  10. ALLOPURINOL [Concomitant]

REACTIONS (7)
  - CONDITION AGGRAVATED [None]
  - DYSPEPSIA [None]
  - FIBROMYALGIA [None]
  - HYPERURICAEMIA [None]
  - INSOMNIA [None]
  - PAIN IN EXTREMITY [None]
  - RESTLESS LEGS SYNDROME [None]
